FAERS Safety Report 5563545-7 (Version None)
Quarter: 2007Q4

REPORT INFORMATION
  Report Type: 
  Country: None (occurrence: None)
  Receive Date: 20071217
  Receipt Date: 20071204
  Transmission Date: 20080405
  Serious: Yes (Other)
  Sender: FDA-Public Use
  Company Number: SE-PFIZER INC-2007101264

PATIENT
  Age: 45 Year
  Sex: Male

DRUGS (1)
  1. PREDNISOLONE [Suspect]
     Indication: GASTROINTESTINAL DISORDER

REACTIONS (3)
  - DIABETES MELLITUS [None]
  - OSTEOGENESIS IMPERFECTA [None]
  - RETINAL DISORDER [None]
